FAERS Safety Report 6413440-6 (Version None)
Quarter: 2009Q4

REPORT INFORMATION
  Report Type: 
  Country: None (occurrence: None)
  Receive Date: 20091026
  Receipt Date: 20091015
  Transmission Date: 20100525
  Serious: Yes (Other)
  Sender: FDA-Public Use
  Company Number: CA-JNJFOC-20091005193

PATIENT
  Sex: Female
  Weight: 61.4 kg

DRUGS (2)
  1. REMICADE [Suspect]
     Route: 042
  2. REMICADE [Suspect]
     Indication: CROHN'S DISEASE
     Route: 042

REACTIONS (4)
  - DYSSTASIA [None]
  - INFUSION RELATED REACTION [None]
  - PRURITUS [None]
  - RENAL PAIN [None]
